FAERS Safety Report 23138140 (Version 3)
Quarter: 2023Q4

REPORT INFORMATION
  Report Type: Report from Study
  Country: MX (occurrence: MX)
  Receive Date: 20231102
  Receipt Date: 20231120
  Transmission Date: 20240109
  Serious: Yes (Other)
  Sender: FDA-Public Use
  Company Number: MX-002147023-NVSC2023MX233674

PATIENT
  Age: 18 Year
  Sex: Female

DRUGS (8)
  1. MEKINIST [Suspect]
     Active Substance: TRAMETINIB DIMETHYL SULFOXIDE
     Indication: Astrocytoma
     Dosage: 4 DOSAGE FORM, QD (0.5 MG)
     Route: 048
     Dates: start: 202008
  2. MEKINIST [Suspect]
     Active Substance: TRAMETINIB DIMETHYL SULFOXIDE
     Dosage: 1 DOSAGE FORM, QD (0.5 MG)
     Route: 048
     Dates: start: 202008, end: 202206
  3. MEKINIST [Suspect]
     Active Substance: TRAMETINIB DIMETHYL SULFOXIDE
     Dosage: 1 DOSAGE FORM, QD (0.5 MG)
     Route: 048
     Dates: start: 202206, end: 202207
  4. MEKINIST [Suspect]
     Active Substance: TRAMETINIB DIMETHYL SULFOXIDE
     Dosage: 1/2 DOSAGE FORM, QD (0.5 MG)
     Route: 048
     Dates: start: 202307, end: 202308
  5. MEKINIST [Suspect]
     Active Substance: TRAMETINIB DIMETHYL SULFOXIDE
     Dosage: 1/2 DOSAGE FORM, QD (0.5 MG)
     Route: 048
     Dates: start: 202308
  6. TAFINLAR [Suspect]
     Active Substance: DABRAFENIB MESYLATE
     Indication: Astrocytoma
     Dosage: 75 MG
     Route: 048
     Dates: start: 202008
  7. TAFINLAR [Suspect]
     Active Substance: DABRAFENIB MESYLATE
     Dosage: 2 DOSAGE FORM, Q12H
     Route: 048
     Dates: start: 202008
  8. TEMOZOLOMIDE [Concomitant]
     Active Substance: TEMOZOLOMIDE
     Indication: Astrocytoma
     Dosage: UNK
     Route: 065
     Dates: start: 202001

REACTIONS (12)
  - Disease recurrence [Recovered/Resolved]
  - Hemiparesis [Not Recovered/Not Resolved]
  - Brain neoplasm [Unknown]
  - Hypersensitivity [Recovered/Resolved]
  - Rash macular [Recovered/Resolved]
  - Abdominal discomfort [Recovered/Resolved]
  - Asthenia [Recovered/Resolved]
  - Depression [Not Recovered/Not Resolved]
  - Balance disorder [Not Recovered/Not Resolved]
  - Gait disturbance [Not Recovered/Not Resolved]
  - Wrong technique in product usage process [Unknown]
  - Off label use [Unknown]

NARRATIVE: CASE EVENT DATE: 20200801
